FAERS Safety Report 6011701-6 (Version None)
Quarter: 2008Q4

REPORT INFORMATION
  Report Type: 
  Country: None (occurrence: None)
  Receive Date: 20081218
  Receipt Date: 20030122
  Transmission Date: 20090506
  Serious: Yes (Death, Hospitalization)
  Sender: FDA-Public Use
  Company Number: AU-ROCHE-950189052001

PATIENT
  Sex: Male
  Weight: 53 kg

DRUGS (12)
  1. CALCITRIOL [Suspect]
     Indication: OSTEOPOROSIS PROPHYLAXIS
     Dosage: TDD REPORTED AS 0.5000 MCG
     Route: 048
     Dates: start: 19950119, end: 19950201
  2. CALCITRIOL [Suspect]
     Dosage: TDD REPORTED AS 0.7500 MCG
     Route: 048
     Dates: start: 19950202, end: 19950604
  3. CALTRATE [Suspect]
     Indication: OSTEOPOROSIS
     Route: 048
     Dates: start: 19950119, end: 19950604
  4. PREDNISONE TAB [Concomitant]
     Indication: HEART TRANSPLANT
     Route: 048
     Dates: start: 19950112, end: 19950604
  5. CYCLOSPORINE [Concomitant]
     Indication: HEART TRANSPLANT
     Route: 048
     Dates: start: 19950112, end: 19950604
  6. AZATHIOPRINE [Concomitant]
     Indication: HEART TRANSPLANT
     Route: 048
     Dates: start: 19950113, end: 19950604
  7. MYCOPHENOLATE MOFETIL [Concomitant]
     Indication: HEART TRANSPLANT
     Route: 048
     Dates: start: 19950113, end: 19950604
  8. KETOCONAZOLE [Concomitant]
     Indication: HEART TRANSPLANT
     Route: 048
     Dates: start: 19950114, end: 19950604
  9. CAPTOPRIL [Concomitant]
     Indication: HEART TRANSPLANT
     Route: 048
     Dates: start: 19950119, end: 19950604
  10. ZANTAC [Concomitant]
     Indication: HEART TRANSPLANT
     Route: 048
     Dates: start: 19950328, end: 19950604
  11. BACTRIM [Concomitant]
     Indication: HEART TRANSPLANT
     Route: 048
     Dates: start: 19950116, end: 19950604
  12. LIPEX [Concomitant]
     Indication: HYPERCHOLESTEROLAEMIA
     Route: 048
     Dates: start: 19950314, end: 19950604

REACTIONS (4)
  - BRADYCARDIA [None]
  - DEATH [None]
  - PYREXIA [None]
  - TACHYCARDIA [None]
